FAERS Safety Report 18356010 (Version 25)
Quarter: 2022Q4

REPORT INFORMATION
  Report Type: Report from Study
  Country: CA (occurrence: CA)
  Receive Date: 20201007
  Receipt Date: 20221221
  Transmission Date: 20230112
  Serious: Yes (Other)
  Sender: FDA-Public Use
  Company Number: CA-BAUSCH-BL-2019-061224

PATIENT
  Age: 51 Year
  Sex: Female
  Weight: 109 kg

DRUGS (4)
  1. SILIQ [Suspect]
     Active Substance: BRODALUMAB
     Indication: Psoriasis
     Dosage: 210MG/ 1.5 ML AT WEEK 0, 1 AND 2
     Route: 058
     Dates: start: 20190913, end: 201909
  2. SILIQ [Suspect]
     Active Substance: BRODALUMAB
     Dosage: 210MG/ 1.5 ML
     Route: 058
     Dates: start: 201910
  3. SILIQ [Suspect]
     Active Substance: BRODALUMAB
     Dosage: 210MG/ 1.5 ML, Q2WEEKS
     Route: 058
     Dates: start: 2022, end: 202211
  4. SILIQ [Suspect]
     Active Substance: BRODALUMAB
     Dosage: 210MG/ 1.5 ML, Q2WEEKS
     Route: 058
     Dates: start: 2022

REACTIONS (13)
  - Blood pressure increased [Recovered/Resolved]
  - Wound infection [Not Recovered/Not Resolved]
  - Limb injury [Unknown]
  - Wound haemorrhage [Unknown]
  - Psoriasis [Not Recovered/Not Resolved]
  - Malaise [Recovered/Resolved]
  - Erythema [Not Recovered/Not Resolved]
  - Road traffic accident [Recovered/Resolved]
  - Stress [Recovered/Resolved]
  - Ill-defined disorder [Not Recovered/Not Resolved]
  - Fatigue [Recovered/Resolved]
  - Patient dissatisfaction with treatment [Unknown]
  - Intentional product use issue [Unknown]

NARRATIVE: CASE EVENT DATE: 20190101
